FAERS Safety Report 5645109-X (Version None)
Quarter: 2008Q1

REPORT INFORMATION
  Report Type: 
  Country: None (occurrence: None)
  Receive Date: 20080229
  Receipt Date: 20080218
  Transmission Date: 20080703
  Serious: Yes (Other)
  Sender: FDA-Public Use
  Company Number: CH-ROCHE-548152

PATIENT
  Age: 27 Year
  Sex: Male

DRUGS (2)
  1. CELLCEPT [Suspect]
     Route: 065
  2. IMUREK [Concomitant]

REACTIONS (2)
  - ENTERITIS [None]
  - RENAL FAILURE [None]
